FAERS Safety Report 6230284-9 (Version None)
Quarter: 2009Q2

REPORT INFORMATION
  Report Type: 
  Country: None (occurrence: None)
  Receive Date: 20090615
  Receipt Date: 20090604
  Transmission Date: 20091009
  Serious: Yes (Death)
  Sender: FDA-Public Use
  Company Number: TW-BAXTER-2009BH008980

PATIENT
  Age: 47 Year
  Sex: Male

DRUGS (4)
  1. DIANEAL [Suspect]
     Indication: RENAL FAILURE CHRONIC
     Route: 033
     Dates: start: 20090401
  2. DIANEAL [Suspect]
     Route: 033
     Dates: start: 20090401
  3. DIANEAL [Suspect]
     Route: 033
     Dates: start: 20090201, end: 20090401
  4. EXTRANEAL [Suspect]
     Indication: RENAL FAILURE CHRONIC
     Route: 033
     Dates: start: 20090401

REACTIONS (3)
  - INFECTION [None]
  - LIVER ABSCESS [None]
  - SEPSIS [None]
